FAERS Safety Report 5753186-0 (Version None)
Quarter: 2008Q2

REPORT INFORMATION
  Report Type: 
  Country: None (occurrence: None)
  Receive Date: 20080530
  Receipt Date: 20080528
  Transmission Date: 20081010
  Serious: Yes (Hospitalization)
  Sender: FDA-Public Use
  Company Number: FR-BRISTOL-MYERS SQUIBB COMPANY-14209167

PATIENT
  Age: 71 Year
  Sex: Male

DRUGS (7)
  1. COAPROVEL TABS 300MG/12.5MG [Suspect]
     Dosage: 1 DOSAGE FORM =300 MG/12.5 MG
  2. PLAVIX [Suspect]
  3. KARDEGIC [Suspect]
  4. ZANIDIP [Concomitant]
  5. EUPRESSYL [Concomitant]
  6. HUMALOG [Concomitant]
  7. PROSCAR [Concomitant]

REACTIONS (1)
  - MUSCLE HAEMORRHAGE [None]
